FAERS Safety Report 18323304 (Version 1)
Quarter: 2020Q3

REPORT INFORMATION
  Report Type: Spontaneous
  Country: US (occurrence: US)
  Receive Date: 20200928
  Receipt Date: 20200928
  Transmission Date: 20201103
  Serious: No
  Sender: FDA-Public Use
  Company Number: US-AMNEAL PHARMACEUTICALS-2020-AMRX-01684

PATIENT
  Age: 68 Year
  Sex: Female
  Weight: 68.04 kg

DRUGS (2)
  1. SUCRALFATE. [Suspect]
     Active Substance: SUCRALFATE
     Indication: GASTRITIS
     Dosage: 10 MILLILITER, 4 /DAY
     Route: 048
     Dates: start: 20200606, end: 20200607
  2. SUCRALFATE. [Suspect]
     Active Substance: SUCRALFATE
     Dosage: 10 MILLILITER, 4 /DAY
     Route: 048
     Dates: start: 20200521

REACTIONS (4)
  - Tongue dry [Recovered/Resolved]
  - Paraesthesia [Recovered/Resolved]
  - Hypoaesthesia oral [Recovered/Resolved]
  - Palpitations [Recovered/Resolved]

NARRATIVE: CASE EVENT DATE: 20200606
